FAERS Safety Report 7914935-6 (Version None)
Quarter: 2011Q4

REPORT INFORMATION
  Report Type: 
  Country: None (occurrence: None)
  Receive Date: 20111115
  Receipt Date: 20111031
  Transmission Date: 20120403
  Serious: Yes (Hospitalization)
  Sender: FDA-Public Use
  Company Number: JP-ROCHE-1008231

PATIENT
  Sex: Female

DRUGS (16)
  1. ACTEMRA [Suspect]
     Route: 042
     Dates: start: 20100927
  2. OPALMON [Concomitant]
     Indication: LUMBAR SPINAL STENOSIS
     Route: 048
  3. NEUROTROPIN [Concomitant]
     Indication: LUMBAR SPINAL STENOSIS
     Route: 048
  4. MUCOSTA [Concomitant]
     Route: 048
  5. PREDNISOLONE [Concomitant]
     Indication: RHEUMATOID ARTHRITIS
     Route: 048
  6. CARVEDILOL [Concomitant]
     Route: 048
  7. RISEDRONATE SODIUM [Concomitant]
     Route: 048
  8. ACTEMRA [Suspect]
     Indication: RHEUMATOID ARTHRITIS
     Route: 058
     Dates: start: 20110314
  9. FAMOTIDINE [Concomitant]
     Indication: GASTRITIS PROPHYLAXIS
     Route: 048
  10. OLMESARTAN MEDOXOMIL [Concomitant]
     Route: 048
  11. CONIEL [Concomitant]
     Route: 048
  12. LOXONIN [Concomitant]
     Route: 048
  13. NEUROVITAN (UKRAINE) [Concomitant]
     Route: 048
  14. ISONIAZID [Concomitant]
     Indication: ANTIBIOTIC PROPHYLAXIS
     Route: 048
  15. DOXAZOSIN MESYLATE [Concomitant]
     Indication: HYPERTENSION
     Route: 048
     Dates: start: 20110314
  16. ALFAROL [Concomitant]
     Indication: OSTEOPOROSIS
     Route: 048

REACTIONS (1)
  - COLONIC POLYP [None]
